FAERS Safety Report 7939039-8 (Version None)
Quarter: 2011Q4

REPORT INFORMATION
  Report Type: 
  Country: None (occurrence: None)
  Receive Date: 20111124
  Receipt Date: 20111123
  Transmission Date: 20120403
  Serious: Yes (Hospitalization, Other)
  Sender: FDA-Public Use
  Company Number: KR-PFIZER INC-2011286174

PATIENT
  Sex: Male

DRUGS (2)
  1. LIPITOR [Suspect]
     Indication: CEREBROVASCULAR ACCIDENT
  2. LIPITOR [Suspect]
     Indication: HYPERCHOLESTEROLAEMIA
     Dosage: UNK
     Route: 048

REACTIONS (4)
  - RENAL IMPAIRMENT [None]
  - DYSURIA [None]
  - BENIGN PROSTATIC HYPERPLASIA [None]
  - BACK PAIN [None]
